FAERS Safety Report 20150867 (Version 1)
Quarter: 2021Q4

REPORT INFORMATION
  Report Type: Report from Study
  Country: BR (occurrence: BR)
  Receive Date: 20211206
  Receipt Date: 20211206
  Transmission Date: 20220303
  Serious: Yes (Other)
  Sender: FDA-Public Use
  Company Number: BR-NOVARTISPH-NVSC2021BR269641

PATIENT
  Age: 46 Year
  Sex: Female

DRUGS (8)
  1. LETROZOLE [Suspect]
     Active Substance: LETROZOLE
     Indication: Invasive breast carcinoma
     Dosage: 2.5 MG (EVERY 28 DAYS)
     Route: 048
     Dates: start: 20180921
  2. ZOLEDRONIC ACID [Suspect]
     Active Substance: ZOLEDRONIC ACID
     Indication: Metabolic disorder
     Dosage: UNK (EVERY 3 MONTHS)
     Route: 065
  3. RIBOCICLIB [Suspect]
     Active Substance: RIBOCICLIB
     Indication: Breast cancer metastatic
     Dosage: 600 MG (DAILY FOR 21 DAYS, PAUSE 7 DAYS)
     Route: 048
     Dates: start: 20180921
  4. RIBOCICLIB [Suspect]
     Active Substance: RIBOCICLIB
     Indication: Hormone receptor positive HER2 negative breast cancer
     Dosage: 400 MG, QD
     Route: 048
  5. MORPHINE [Concomitant]
     Active Substance: MORPHINE
     Indication: Product used for unknown indication
     Dosage: 5 MG (6/6 HOURS)
     Route: 048
  6. DIPYRONE [Concomitant]
     Active Substance: DIPYRONE
     Indication: Product used for unknown indication
     Dosage: 1 MG (6/6 HOUR)
     Route: 048
  7. GOSERELIN [Concomitant]
     Active Substance: GOSERELIN
     Indication: Product used for unknown indication
     Dosage: 3.6 MG (EVERY 28 DAYS)
     Route: 058
     Dates: start: 20180921
  8. FULVESTRANT [Concomitant]
     Active Substance: FULVESTRANT
     Indication: Product used for unknown indication
     Dosage: UNK
     Route: 065

REACTIONS (9)
  - Breast injury [Recovering/Resolving]
  - Neutropenia [Unknown]
  - Osteolysis [Unknown]
  - Lymphadenopathy [Unknown]
  - Hot flush [Unknown]
  - Bone pain [Recovering/Resolving]
  - Arthralgia [Unknown]
  - Pleural effusion [Unknown]
  - Pathological fracture [Unknown]
